FAERS Safety Report 12652554 (Version 1)
Quarter: 2016Q3

REPORT INFORMATION
  Report Type: Spontaneous
  Country: US (occurrence: US)
  Receive Date: 20160815
  Receipt Date: 20160815
  Transmission Date: 20161109
  Serious: No
  Sender: FDA-Public Use
  Company Number: US-PFIZER INC-2016385599

PATIENT
  Age: 54 Year
  Sex: Female

DRUGS (3)
  1. PREDNISONE. [Suspect]
     Active Substance: PREDNISONE
     Dosage: 5 MG, DAILY
  2. PREDNISONE. [Suspect]
     Active Substance: PREDNISONE
     Dosage: 3 MG, DAILY
  3. XELJANZ XR [Suspect]
     Active Substance: TOFACITINIB CITRATE
     Indication: RHEUMATOID ARTHRITIS
     Dosage: 11 MG,UNK
     Route: 048

REACTIONS (4)
  - Ear pain [Unknown]
  - Pain [Unknown]
  - Oropharyngeal pain [Unknown]
  - Joint swelling [Unknown]
